FAERS Safety Report 11647671 (Version 1)
Quarter: 2015Q4

REPORT INFORMATION
  Report Type: Spontaneous
  Country: US (occurrence: US)
  Receive Date: 20151021
  Receipt Date: 20151021
  Transmission Date: 20160304
  Serious: No
  Sender: FDA-Public Use
  Company Number: US-TEVA-534464USA

PATIENT
  Sex: Female

DRUGS (7)
  1. ATORVASTATIN [Concomitant]
     Active Substance: ATORVASTATIN
  2. AMOXICILLIN W/CLAVULANIC ACID [Suspect]
     Active Substance: AMOXICILLIN\CLAVULANIC ACID
  3. NUTRIGOLD VITAMIN D3 [Concomitant]
  4. WARFARIN [Concomitant]
     Active Substance: WARFARIN
     Dosage: 1MG AND 5 MG- 5.58 MG QD FOR 2.5 YEARS
  5. LASIX [Concomitant]
     Active Substance: FUROSEMIDE
  6. TRILIPIX [Concomitant]
     Active Substance: FENOFIBRIC ACID
  7. LOSARTAN. [Concomitant]
     Active Substance: LOSARTAN

REACTIONS (1)
  - Abdominal discomfort [Unknown]
